FAERS Safety Report 10226606 (Version 1)
Quarter: 2014Q2

REPORT INFORMATION
  Report Type: Spontaneous
  Country: US (occurrence: US)
  Receive Date: 20140609
  Receipt Date: 20140609
  Transmission Date: 20141212
  Serious: No
  Sender: FDA-Public Use
  Company Number: US-AMGEN INC.-USASP2014021529

PATIENT
  Age: 43 Year
  Sex: Female
  Weight: 70.3 kg

DRUGS (2)
  1. PROCRIT [Suspect]
     Indication: ANAEMIA
     Dosage: 4000 UNIT, UNK
     Route: 058
  2. WARFARIN [Concomitant]
     Indication: PULMONARY EMBOLISM
     Dosage: ^4 AND 3 /TABIETS/^4 AND 3^, QD
     Route: 048
     Dates: start: 2013

REACTIONS (6)
  - Diarrhoea [Not Recovered/Not Resolved]
  - Cold sweat [Not Recovered/Not Resolved]
  - Hyperhidrosis [Not Recovered/Not Resolved]
  - Pain [Not Recovered/Not Resolved]
  - Feeling abnormal [Not Recovered/Not Resolved]
  - Anxiety [Not Recovered/Not Resolved]
